FAERS Safety Report 8202152-4 (Version None)
Quarter: 2012Q1

REPORT INFORMATION
  Report Type: 
  Country: None (occurrence: None)
  Receive Date: 20120312
  Receipt Date: 20120308
  Transmission Date: 20120608
  Serious: No
  Sender: FDA-Public Use
  Company Number: JP-PFIZER INC-2012057668

PATIENT
  Sex: Female

DRUGS (2)
  1. LYRICA [Suspect]
     Dosage: 75 MG/DAY
     Dates: start: 20110501
  2. LYRICA [Suspect]
     Indication: PAIN
     Dosage: 25 MG/DAY
     Dates: start: 20110309

REACTIONS (2)
  - FALL [None]
  - PAIN [None]
